FAERS Safety Report 15515840 (Version 2)
Quarter: 2023Q4

REPORT INFORMATION
  Report Type: Spontaneous
  Country: IT (occurrence: IT)
  Receive Date: 20181017
  Receipt Date: 20231104
  Transmission Date: 20240109
  Serious: Yes (Hospitalization)
  Sender: FDA-Public Use
  Company Number: IT-AUROBINDO-AUR-APL-2018-050483

PATIENT
  Age: 1 Year
  Sex: Female

DRUGS (2)
  1. FLECAINIDE [Suspect]
     Active Substance: FLECAINIDE
     Indication: Arrhythmia supraventricular
     Dosage: 75 MILLIGRAM, DAILY
     Route: 048
     Dates: start: 20180701, end: 20180822
  2. SOTALOL [Suspect]
     Active Substance: SOTALOL
     Indication: Arrhythmia supraventricular
     Dosage: 36 MILLIGRAM, DAILY
     Route: 048
     Dates: start: 20180701, end: 20180822

REACTIONS (4)
  - Arrhythmia [Unknown]
  - Dyspnoea [Unknown]
  - Drug ineffective [Unknown]
  - Off label use [Unknown]

NARRATIVE: CASE EVENT DATE: 20180922
